FAERS Safety Report 8118758-7 (Version None)
Quarter: 2012Q1

REPORT INFORMATION
  Report Type: 
  Country: None (occurrence: None)
  Receive Date: 20120202
  Receipt Date: 20120119
  Transmission Date: 20120608
  Serious: Yes (Hospitalization)
  Sender: FDA-Public Use
  Company Number: 2012CP000015

PATIENT
  Age: 15 Year
  Sex: Male

DRUGS (2)
  1. ACETAMINOPHEN [Suspect]
     Dosage: IV
     Route: 042
     Dates: start: 20120115
  2. METRONIDAZOLE [Suspect]
     Dosage: IV
     Route: 042
     Dates: start: 20120115

REACTIONS (1)
  - ANAEMIA [None]
